FAERS Safety Report 5467682-7 (Version None)
Quarter: 2007Q3

REPORT INFORMATION
  Report Type: 
  Country: None (occurrence: None)
  Receive Date: 20070921
  Receipt Date: 20070911
  Transmission Date: 20080115
  Serious: Yes (Death)
  Sender: FDA-Public Use
  Company Number: US021234

PATIENT
  Sex: Female

DRUGS (2)
  1. ACTIQ [Suspect]
     Indication: BREAKTHROUGH PAIN
     Dosage: BUCCAL
  2. ACTIQ [Suspect]
     Indication: CANCER PAIN
     Dosage: BUCCAL

REACTIONS (1)
  - DEATH [None]
